FAERS Safety Report 7142255-9 (Version None)
Quarter: 2010Q4

REPORT INFORMATION
  Report Type: 
  Country: None (occurrence: None)
  Receive Date: 20101207
  Receipt Date: 20101130
  Transmission Date: 20110411
  Serious: Yes (Hospitalization, Other)
  Sender: FDA-Public Use
  Company Number: US-MERCK-1003USA00174

PATIENT
  Age: 49 Year
  Sex: Female

DRUGS (5)
  1. FOSAMAX [Suspect]
     Indication: OSTEOPOROSIS
     Route: 048
     Dates: start: 19990101, end: 20080101
  2. PREVACID [Concomitant]
     Indication: GASTROOESOPHAGEAL REFLUX DISEASE
     Route: 065
     Dates: start: 19950101
  3. ZOLOFT [Concomitant]
     Indication: DEPRESSION
     Route: 065
     Dates: start: 19980101
  4. ACTONEL [Suspect]
     Route: 065
  5. FORTEO [Suspect]
     Route: 065

REACTIONS (10)
  - ADVERSE EVENT [None]
  - ANXIETY [None]
  - BREAST DISORDER [None]
  - EXOSTOSIS [None]
  - GINGIVAL DISORDER [None]
  - HAND FRACTURE [None]
  - IMPAIRED HEALING [None]
  - ORAL INFECTION [None]
  - OSTEONECROSIS OF JAW [None]
  - SQUAMOUS CELL CARCINOMA OF SKIN [None]
